FAERS Safety Report 12994363 (Version 2)
Quarter: 2016Q4

REPORT INFORMATION
  Report Type: Spontaneous
  Country: DE (occurrence: DE)
  Receive Date: 20161202
  Receipt Date: 20161202
  Transmission Date: 20170207
  Serious: Yes (Hospitalization)
  Sender: FDA-Public Use
  Company Number: DE-TEVA-714653GER

PATIENT
  Age: 31 Year
  Sex: Male
  Weight: 81 kg

DRUGS (8)
  1. DIAZEPAM. [Suspect]
     Active Substance: DIAZEPAM
     Dosage: 30 MILLIGRAM DAILY;
     Route: 048
     Dates: start: 20160614
  2. DIAZEPAM. [Suspect]
     Active Substance: DIAZEPAM
     Dosage: 30 MILLIGRAM DAILY;
     Route: 048
     Dates: start: 20160723
  3. DIAZEPAM. [Suspect]
     Active Substance: DIAZEPAM
     Dosage: 40 MILLIGRAM DAILY;
     Route: 048
     Dates: start: 20160627, end: 20160721
  4. OLANZAPINE. [Suspect]
     Active Substance: OLANZAPINE
     Route: 048
     Dates: start: 20160617
  5. DIAZEPAM. [Suspect]
     Active Substance: DIAZEPAM
     Dosage: 25 MILLIGRAM DAILY;
     Route: 048
     Dates: start: 20160724
  6. OLANZAPINE. [Suspect]
     Active Substance: OLANZAPINE
     Dosage: 20 MILLIGRAM DAILY;
     Route: 048
     Dates: start: 20160608, end: 20160616
  7. DIAZEPAM. [Suspect]
     Active Substance: DIAZEPAM
     Dosage: 35 MILLIGRAM DAILY;
     Route: 048
     Dates: start: 20160722
  8. DIAZEPAM. [Suspect]
     Active Substance: DIAZEPAM
     Dosage: 20 MILLIGRAM DAILY;
     Route: 048
     Dates: start: 20160725

REACTIONS (1)
  - Weight increased [Not Recovered/Not Resolved]

NARRATIVE: CASE EVENT DATE: 20160619
